FAERS Safety Report 7326075-8 (Version None)
Quarter: 2011Q1

REPORT INFORMATION
  Report Type: 
  Country: None (occurrence: None)
  Receive Date: 20110302
  Receipt Date: 20110224
  Transmission Date: 20110831
  Serious: Yes (Death, Other)
  Sender: FDA-Public Use
  Company Number: US-GENZYME-200819520GPV

PATIENT

DRUGS (7)
  1. ACYCLOVIR [Concomitant]
     Indication: ANTIVIRAL PROPHYLAXIS
     Dosage: UNK
     Route: 065
  2. FLUDARA [Suspect]
     Indication: STEM CELL TRANSPLANT
     Dosage: 30 MG/M2, QD ON DAYS -6 TO -2
     Route: 042
  3. TREOSULFAN [Suspect]
     Indication: STEM CELL TRANSPLANT
     Dosage: 12 OR 14 G/M2/DAY, ON DAYS -6 TO -4
     Route: 042
  4. TRIMETHOPRIM + SULFAMETHOXAZOLE [Concomitant]
     Indication: ANTIFUNGAL PROPHYLAXIS
     Dosage: UNK
     Route: 065
  5. TACROLIMUS [Concomitant]
     Indication: PROPHYLAXIS AGAINST GRAFT VERSUS HOST DISEASE
     Dosage: UNK, UNK
     Route: 065
  6. METHOTREXATE [Concomitant]
     Indication: PROPHYLAXIS AGAINST GRAFT VERSUS HOST DISEASE
     Dosage: UNK, UNK
     Route: 065
  7. CYCLOSPORINE [Concomitant]
     Indication: PROPHYLAXIS AGAINST GRAFT VERSUS HOST DISEASE
     Dosage: UNK, UNK
     Route: 065

REACTIONS (10)
  - FUNGAL INFECTION [None]
  - CHRONIC GRAFT VERSUS HOST DISEASE [None]
  - HEPATOTOXICITY [None]
  - PULMONARY TOXICITY [None]
  - MUCOSAL INFLAMMATION [None]
  - SKIN TOXICITY [None]
  - ACUTE GRAFT VERSUS HOST DISEASE [None]
  - CARDIOTOXICITY [None]
  - NEPHROPATHY TOXIC [None]
  - HAEMORRHAGE INTRACRANIAL [None]
